FAERS Safety Report 7354888-5 (Version None)
Quarter: 2011Q1

REPORT INFORMATION
  Report Type: 
  Country: None (occurrence: None)
  Receive Date: 20110316
  Receipt Date: 20100628
  Transmission Date: 20110831
  Serious: Yes (Other)
  Sender: FDA-Public Use
  Company Number: US-BAYER-201026312NA

PATIENT
  Sex: Male
  Weight: 158.73 kg

DRUGS (15)
  1. LEVEMIR [Concomitant]
     Dosage: 106 U, UNK
  2. TRASYLOL [Suspect]
     Indication: MITRAL VALVE REPAIR
  3. INSULIN ASPART [Concomitant]
     Dosage: 16 U, TID
     Route: 058
     Dates: start: 20070612
  4. CAPOTEN [Concomitant]
     Dosage: 6.25 MG, TID
     Route: 048
     Dates: start: 20070611
  5. NITROGLYCERIN [Concomitant]
     Dosage: UNK
     Route: 061
     Dates: start: 20070611
  6. INSULIN [Concomitant]
     Dosage: UNK
  7. APIDRA [Concomitant]
  8. AMIODARONE HCL [Concomitant]
  9. LOVENOX [Concomitant]
     Dosage: 145 MG, ONCE
     Route: 058
     Dates: start: 20070611
  10. COREG [Concomitant]
     Dosage: 3.125 MG, BID
     Route: 048
     Dates: start: 20070611
  11. DOBUTAMINE [Concomitant]
     Dosage: 5 UNK, UNK
     Dates: start: 20070615
  12. TRASYLOL [Suspect]
     Indication: CORONARY ARTERY BYPASS
     Route: 042
     Dates: start: 20070615
  13. LASIX [Concomitant]
     Dosage: 20 MG, UNK
     Route: 048
  14. ASPIRIN [Concomitant]
     Dosage: 325 MG, QD
     Route: 048
  15. PLAVIX [Concomitant]
     Dosage: 600 MG, UNK
     Route: 048
     Dates: start: 20070611

REACTIONS (9)
  - RENAL INJURY [None]
  - ANXIETY [None]
  - FEAR [None]
  - RENAL FAILURE [None]
  - STRESS [None]
  - PAIN [None]
  - EMOTIONAL DISORDER [None]
  - RENAL IMPAIRMENT [None]
  - EMOTIONAL DISTRESS [None]
